FAERS Safety Report 19704441 (Version 1)
Quarter: 2021Q3

REPORT INFORMATION
  Report Type: Spontaneous
  Country: US (occurrence: US)
  Receive Date: 20210814
  Receipt Date: 20210814
  Transmission Date: 20211014
  Serious: No
  Sender: FDA-Public Use
  Company Number: None

PATIENT
  Sex: Female

DRUGS (1)
  1. HUMIRA [Suspect]
     Active Substance: ADALIMUMAB
     Indication: SPINAL OSTEOARTHRITIS
     Route: 058
     Dates: start: 202103

REACTIONS (7)
  - Oropharyngeal pain [None]
  - Fatigue [None]
  - Therapy interrupted [None]
  - Chills [None]
  - Infection [None]
  - Nasopharyngitis [None]
  - Drainage [None]
